FAERS Safety Report 8537557-5 (Version None)
Quarter: 2012Q3

REPORT INFORMATION
  Report Type: 
  Country: None (occurrence: None)
  Receive Date: 20120725
  Receipt Date: 20120717
  Transmission Date: 20120928
  Serious: Yes (Other)
  Sender: FDA-Public Use
  Company Number: US-ASTRAZENECA-2012SE50384

PATIENT
  Age: 70 Year
  Sex: Female

DRUGS (3)
  1. ONGLYZA [Concomitant]
  2. CRESTOR [Suspect]
     Route: 048
  3. ASPIRIN [Concomitant]

REACTIONS (3)
  - DIABETES MELLITUS [None]
  - CEREBRAL HAEMORRHAGE [None]
  - CHRONIC OBSTRUCTIVE PULMONARY DISEASE [None]
